FAERS Safety Report 6897962-X (Version None)
Quarter: 2010Q3

REPORT INFORMATION
  Report Type: 
  Country: None (occurrence: None)
  Receive Date: 20100802
  Receipt Date: 20070731
  Transmission Date: 20110219
  Serious: No
  Sender: FDA-Public Use
  Company Number: US-PFIZER INC-2007068409

PATIENT
  Sex: Male
  Weight: 88.6 kg

DRUGS (5)
  1. LYRICA [Suspect]
     Indication: NEURALGIA
     Dates: start: 20070730
  2. LIPITOR [Concomitant]
  3. TRICOR [Concomitant]
  4. PRINZIDE [Concomitant]
  5. METFORMIN/PIOGLITAZONE [Concomitant]

REACTIONS (3)
  - DIARRHOEA [None]
  - DIZZINESS [None]
  - NAUSEA [None]
